FAERS Safety Report 8443482-0 (Version None)
Quarter: 2012Q2

REPORT INFORMATION
  Report Type: 
  Country: None (occurrence: None)
  Receive Date: 20120618
  Receipt Date: 20120606
  Transmission Date: 20120825
  Serious: Yes (Other)
  Sender: FDA-Public Use
  Company Number: CA-JNJFOC-20120603544

PATIENT
  Sex: Female
  Weight: 46.5 kg

DRUGS (1)
  1. REMICADE [Suspect]
     Indication: CROHN'S DISEASE
     Route: 042
     Dates: start: 20120301

REACTIONS (4)
  - VISION BLURRED [None]
  - FATIGUE [None]
  - ARTHRALGIA [None]
  - HYPOAESTHESIA [None]
